FAERS Safety Report 19373130 (Version 1)
Quarter: 2021Q2

REPORT INFORMATION
  Report Type: Report from Study
  Country: US (occurrence: US)
  Receive Date: 20210604
  Receipt Date: 20210604
  Transmission Date: 20210717
  Serious: Yes (Other)
  Sender: FDA-Public Use
  Company Number: US-MYLANLABS-2021M1031894

PATIENT
  Age: 79 Year
  Sex: Female

DRUGS (2)
  1. BETAMETHASONE. [Concomitant]
     Active Substance: BETAMETHASONE
     Indication: LICHEN PLANUS
     Dosage: UNK UNK, BID
     Route: 065
  2. MYCOPHENOLATE MOFETIL. [Suspect]
     Active Substance: MYCOPHENOLATE MOFETIL
     Indication: LICHEN PLANUS
     Dosage: 1500 MILLIGRAM, QD MAXIMUM DOSE
     Route: 065

REACTIONS (6)
  - Drug ineffective for unapproved indication [Unknown]
  - Malaise [Unknown]
  - Off label use [Unknown]
  - Nausea [Unknown]
  - Fatigue [Unknown]
  - Arthralgia [Unknown]
